FAERS Safety Report 5878201-5 (Version None)
Quarter: 2008Q3

REPORT INFORMATION
  Report Type: 
  Country: None (occurrence: None)
  Receive Date: 20080911
  Receipt Date: 20080905
  Transmission Date: 20090109
  Serious: Yes (Hospitalization)
  Sender: FDA-Public Use
  Company Number: PHHY2008CH20297

PATIENT
  Age: 42 Year
  Sex: Male

DRUGS (2)
  1. TEGRETOL [Suspect]
     Indication: EPILEPSY
     Dosage: UNK
     Dates: start: 19930101
  2. CLONAZEPAM [Suspect]
     Dosage: UNK
     Dates: start: 19930101

REACTIONS (9)
  - ANTINUCLEAR ANTIBODY POSITIVE [None]
  - C-REACTIVE PROTEIN INCREASED [None]
  - CEREBELLAR SYNDROME [None]
  - DRUG LEVEL INCREASED [None]
  - HEMIPLEGIA [None]
  - LEUKOPENIA [None]
  - PROCALCITONIN INCREASED [None]
  - PYREXIA [None]
  - THROMBOCYTOPENIA [None]
